FAERS Safety Report 19103573 (Version 3)
Quarter: 2021Q2

REPORT INFORMATION
  Report Type: Report from Study
  Country: RU (occurrence: RU)
  Receive Date: 20210407
  Receipt Date: 20210507
  Transmission Date: 20210717
  Serious: No
  Sender: FDA-Public Use
  Company Number: RU-ALLERGAN-2113936US

PATIENT
  Age: 16 Year
  Sex: Male
  Weight: 58 kg

DRUGS (3)
  1. CARIPRAZINE HCL ? BP [Suspect]
     Active Substance: CARIPRAZINE HYDROCHLORIDE
     Indication: SCHIZOPHRENIA
     Dosage: 1.5 MG, QD
     Route: 048
     Dates: start: 20201208
  2. SERTRALINE [Concomitant]
     Active Substance: SERTRALINE HYDROCHLORIDE
     Indication: DEPRESSIVE SYMPTOM
     Dosage: 100 MG, QD
     Route: 048
     Dates: start: 20190919
  3. CARIPRAZINE HCL ? BP [Suspect]
     Active Substance: CARIPRAZINE HYDROCHLORIDE
     Dosage: CARIPRAZINE MIXED DOSE KIT (0.5 MG AND 1.5 MG) QD
     Route: 048
     Dates: start: 20201201, end: 20201207

REACTIONS (1)
  - Accommodation disorder [Recovered/Resolved]

NARRATIVE: CASE EVENT DATE: 20201224
